FAERS Safety Report 6081497-0 (Version None)
Quarter: 2009Q1

REPORT INFORMATION
  Report Type: 
  Country: None (occurrence: None)
  Receive Date: 20090213
  Receipt Date: 20090129
  Transmission Date: 20090719
  Serious: Yes (Other)
  Sender: FDA-Public Use
  Company Number: 2009EN000029

PATIENT
  Sex: Male

DRUGS (1)
  1. ADAGEN [Suspect]
     Indication: ADENOSINE DEAMINASE DEFICIENCY
     Dates: start: 20051101, end: 20060901

REACTIONS (3)
  - GASTROENTERITIS [None]
  - PNEUMOCYSTIS JIROVECI PNEUMONIA [None]
  - THERAPEUTIC RESPONSE DECREASED [None]
